FAERS Safety Report 7650341-X (Version None)
Quarter: 2011Q3

REPORT INFORMATION
  Report Type: 
  Country: None (occurrence: None)
  Receive Date: 20110802
  Receipt Date: 20110721
  Transmission Date: 20111222
  Serious: Yes (Other)
  Sender: FDA-Public Use
  Company Number: GB-RB-027186-11

PATIENT
  Age: 64 Year
  Sex: Male

DRUGS (5)
  1. SALICYLIC ACID [Suspect]
  2. ASPIRIN [Concomitant]
  3. WARFARIN SODIUM [Concomitant]
  4. NITROLINGUAL [Concomitant]
  5. DIGOXIN [Concomitant]

REACTIONS (1)
  - SOFT TISSUE NECROSIS [None]
